FAERS Safety Report 9715643 (Version 4)
Quarter: 2014Q1

REPORT INFORMATION
  Report Type: Report from Study
  Country: US (occurrence: US)
  Receive Date: 20131127
  Receipt Date: 20140207
  Transmission Date: 20141002
  Serious: Yes (Other)
  Sender: FDA-Public Use
  Company Number: US-PFIZER INC-2013333044

PATIENT
  Age: 56 Year
  Sex: Male
  Weight: 80.27 kg

DRUGS (2)
  1. TOFACITINIB CITRATE [Suspect]
     Indication: PSORIASIS
     Dosage: 10 MG, 2X/DAY
     Route: 048
     Dates: start: 20120209, end: 20131029
  2. METROGEL [Concomitant]
     Indication: ROSACEA
     Dosage: 1 DF , 1X/DAY
     Route: 061
     Dates: start: 20120509

REACTIONS (1)
  - Basal cell carcinoma [Recovered/Resolved]
